FAERS Safety Report 19409930 (Version 1)
Quarter: 2021Q2

REPORT INFORMATION
  Report Type: Spontaneous
  Country: US (occurrence: US)
  Receive Date: 20210614
  Receipt Date: 20210614
  Transmission Date: 20210717
  Serious: No
  Sender: FDA-Public Use
  Company Number: US-APOTEX-2021AP014345

PATIENT
  Age: 60 Year
  Sex: Male

DRUGS (3)
  1. AMITRIPTYLINE [Interacting]
     Active Substance: AMITRIPTYLINE
     Indication: BACK PAIN
     Dosage: 10 MILLIGRAM
     Route: 065
  2. AMITRIPTYLINE [Interacting]
     Active Substance: AMITRIPTYLINE
     Dosage: 75 MILLIGRAM, QD
     Route: 065
  3. PAROXETINE. [Suspect]
     Active Substance: PAROXETINE
     Indication: MAJOR DEPRESSION
     Dosage: 40 MILLIGRAM, QD
     Route: 065

REACTIONS (5)
  - Dry mouth [Unknown]
  - Constipation [Unknown]
  - Drug interaction [Unknown]
  - Dysuria [Unknown]
  - Somnolence [Unknown]
